FAERS Safety Report 21089424 (Version 1)
Quarter: 2022Q3

REPORT INFORMATION
  Report Type: Spontaneous
  Country: FR (occurrence: FR)
  Receive Date: 20220715
  Receipt Date: 20220715
  Transmission Date: 20221027
  Serious: Yes (Other)
  Sender: FDA-Public Use
  Company Number: None

PATIENT
  Age: 81 Year
  Sex: Male

DRUGS (1)
  1. CYMBALTA [Suspect]
     Active Substance: DULOXETINE HYDROCHLORIDE
     Indication: Depression
     Route: 065
     Dates: start: 20220609, end: 20220613

REACTIONS (2)
  - Thrombocytopenia [Recovering/Resolving]
  - Hyponatraemia [Recovering/Resolving]

NARRATIVE: CASE EVENT DATE: 20220613
